FAERS Safety Report 5487546-2 (Version None)
Quarter: 2007Q4

REPORT INFORMATION
  Report Type: 
  Country: None (occurrence: None)
  Receive Date: 20071015
  Receipt Date: 20071003
  Transmission Date: 20080405
  Serious: Yes (Life-Threatening)
  Sender: FDA-Public Use
  Company Number: GXKR2007GB08563

PATIENT
  Age: 68 Year
  Sex: Male

DRUGS (6)
  1. CEFUROXIME [Suspect]
     Indication: INTRAOPERATIVE CARE
     Dosage: 1.5 G, INTRAVENOUS
     Route: 042
     Dates: start: 20070914, end: 20070914
  2. AMLODIPINE [Concomitant]
  3. ACETYLSALICYLIC ACID SRT [Concomitant]
  4. LISINOPRIL [Concomitant]
  5. ACETAMINOPHEN [Concomitant]
  6. SIMVASTATIN [Concomitant]

REACTIONS (2)
  - HYPOTENSION [None]
  - URTICARIA [None]
